FAERS Safety Report 25013460 (Version 1)
Quarter: 2025Q1

REPORT INFORMATION
  Report Type: Spontaneous
  Country: US (occurrence: US)
  Receive Date: 20250226
  Receipt Date: 20250226
  Transmission Date: 20250409
  Serious: No
  Sender: UCB
  Company Number: US-UCBSA-2024029305

PATIENT
  Sex: Female

DRUGS (7)
  1. LEVETIRACETAM [Suspect]
     Active Substance: LEVETIRACETAM
     Indication: Progressive myoclonic epilepsy
  2. LEVETIRACETAM [Suspect]
     Active Substance: LEVETIRACETAM
     Indication: Gene mutation
  3. LEVETIRACETAM [Suspect]
     Active Substance: LEVETIRACETAM
     Indication: Off label use
  4. PERAMPANEL [Concomitant]
     Active Substance: PERAMPANEL
     Indication: Progressive myoclonic epilepsy
  5. PERAMPANEL [Concomitant]
     Active Substance: PERAMPANEL
     Indication: Gene mutation
  6. CLONAZEPAM [Concomitant]
     Active Substance: CLONAZEPAM
     Indication: Progressive myoclonic epilepsy
  7. CLONAZEPAM [Concomitant]
     Active Substance: CLONAZEPAM
     Indication: Gene mutation

REACTIONS (2)
  - Drug ineffective for unapproved indication [Unknown]
  - Off label use [Unknown]
